FAERS Safety Report 13247120 (Version 1)
Quarter: 2017Q1

REPORT INFORMATION
  Report Type: Report from Study
  Country: DE (occurrence: DE)
  Receive Date: 20170217
  Receipt Date: 20170217
  Transmission Date: 20170428
  Serious: Yes (Death, Hospitalization, Other)
  Sender: FDA-Public Use
  Company Number: DE-ELI_LILLY_AND_COMPANY-DE201702005216

PATIENT
  Age: 74 Year
  Sex: Male
  Weight: 79 kg

DRUGS (21)
  1. AMLODIPINE [Concomitant]
     Active Substance: AMLODIPINE BESYLATE
     Dosage: 5 MG, UNK
     Dates: start: 201306
  2. VALSARTAN. [Concomitant]
     Active Substance: VALSARTAN
     Dosage: 1 DF, UNK
     Dates: start: 201306
  3. ALOXI [Concomitant]
     Active Substance: PALONOSETRON HYDROCHLORIDE
     Dosage: 500 UG, CAPSULE
     Dates: start: 20161221
  4. IBUPROFEN. [Concomitant]
     Active Substance: IBUPROFEN
     Dosage: 600 MG, UNK
     Dates: start: 201612
  5. FORTIMEL [Concomitant]
     Active Substance: DIETARY SUPPLEMENT
     Dosage: 1 DF, UNK
     Dates: start: 20161220
  6. PEMETREXED [Suspect]
     Active Substance: PEMETREXED
     Indication: NON-SMALL CELL LUNG CANCER
     Dosage: 500 MG/M2, EVERY THREE WEEKS
     Route: 042
     Dates: start: 20161220, end: 20161220
  7. METOPROLOL. [Concomitant]
     Active Substance: METOPROLOL
     Dosage: 5 MG, UNK
     Dates: start: 201607
  8. TILIDIN [Concomitant]
     Active Substance: NALOXONE HYDROCHLORIDE\TILIDINE HYDROCHLORIDE
     Dosage: 1 DF, UNK
     Dates: start: 201612
  9. NOVALGIN [Concomitant]
     Active Substance: METAMIZOLE SODIUM
     Dosage: 30 GTT, UNK
     Dates: start: 20161128
  10. METOCLOPRAMIDE. [Concomitant]
     Active Substance: METOCLOPRAMIDE
     Dosage: 10 MG, UNK
     Dates: start: 20161221
  11. CYANOCOBALAMIN. [Concomitant]
     Active Substance: CYANOCOBALAMIN
     Dosage: 1000 UG, UNK
     Dates: start: 20161220, end: 20161220
  12. DEXAMETHASONE. [Concomitant]
     Active Substance: DEXAMETHASONE
     Dosage: 16 MG, UNK
     Dates: start: 20161220, end: 20161220
  13. CARBOPLATIN. [Suspect]
     Active Substance: CARBOPLATIN
     Indication: NON-SMALL CELL LUNG CANCER
     Dosage: AUG 5, Q3W
     Route: 042
     Dates: start: 20161220, end: 20161220
  14. DIGITOXIN [Concomitant]
     Active Substance: DIGITOXIN
     Dosage: 0.07 MG, UNK
     Dates: start: 201607
  15. ALOXI [Concomitant]
     Active Substance: PALONOSETRON HYDROCHLORIDE
     Dosage: 250 UG, INJECTION
     Dates: start: 20161220, end: 20161220
  16. ZANTAC [Concomitant]
     Active Substance: RANITIDINE HYDROCHLORIDE
     Dosage: 50 MG, UNK
     Dates: start: 20161220, end: 20161220
  17. HALDOL [Concomitant]
     Active Substance: HALOPERIDOL
     Dosage: 8 GTT, UNK
     Dates: start: 20161220
  18. PANTOPRAZOLE [Concomitant]
     Active Substance: PANTOPRAZOLE SODIUM
     Dosage: 20 MG, UNK
     Dates: start: 201001
  19. XARELTO [Concomitant]
     Active Substance: RIVAROXABAN
     Dosage: 20 MG, UNK
     Dates: start: 201607, end: 20161226
  20. FENISTIL [Concomitant]
     Active Substance: DIMETHINDENE
     Dosage: 4 MG, UNK
     Dates: start: 20161220, end: 20161220
  21. THYRONAJOD [Concomitant]
     Active Substance: LEVOTHYROXINE SODIUM\POTASSIUM IODIDE
     Dosage: 50 UG, UNK
     Dates: start: 201001

REACTIONS (5)
  - Neutropenic sepsis [Fatal]
  - Mucosal inflammation [Unknown]
  - Pneumonia [Unknown]
  - Prerenal failure [Unknown]
  - Pancytopenia [Unknown]

NARRATIVE: CASE EVENT DATE: 20161229
